FAERS Safety Report 18604233 (Version 1)
Quarter: 2020Q4

REPORT INFORMATION
  Report Type: Other
  Country: CN (occurrence: CN)
  Receive Date: 20201211
  Receipt Date: 20201211
  Transmission Date: 20210114
  Serious: Yes (Death, Hospitalization, Other)
  Sender: FDA-Public Use
  Company Number: CN-FDC LIMITED-2101875

PATIENT
  Age: 56 Year
  Sex: Male

DRUGS (2)
  1. CIPROFLOXACIN. [Suspect]
     Active Substance: CIPROFLOXACIN
     Indication: EPILEPSY
     Route: 042
  2. TIGECYCLINE. [Concomitant]
     Active Substance: TIGECYCLINE
     Route: 065

REACTIONS (1)
  - Cardiac arrest [Fatal]
